FAERS Safety Report 12205476 (Version 2)
Quarter: 2016Q2

REPORT INFORMATION
  Report Type: Spontaneous
  Country: BR (occurrence: BR)
  Receive Date: 20160323
  Receipt Date: 20160420
  Transmission Date: 20160815
  Serious: Yes (Death, Hospitalization, Other)
  Sender: FDA-Public Use
  Company Number: BR-PFIZER INC-2016171141

PATIENT
  Age: 84 Year
  Sex: Female

DRUGS (4)
  1. LYRICA [Suspect]
     Active Substance: PREGABALIN
     Dosage: UNK
     Dates: end: 20150626
  2. FRONTAL [Suspect]
     Active Substance: ALPRAZOLAM
     Indication: DEPRESSION
     Dosage: UNK
     Dates: end: 20150626
  3. EXELON [Concomitant]
     Active Substance: RIVASTIGMINE TARTRATE
     Indication: DEPRESSION
     Dosage: UNK, PLACED EVERY DAY ON THE BACK
  4. ASPIRIN. [Concomitant]
     Active Substance: ASPIRIN
     Dosage: UNK

REACTIONS (12)
  - Sepsis [Fatal]
  - Pain [Recovered/Resolved]
  - Coma [Unknown]
  - Femur fracture [Unknown]
  - Bacterial infection [Fatal]
  - Atrophy [Unknown]
  - Skin infection [Unknown]
  - Peripheral swelling [Unknown]
  - Fall [Unknown]
  - Local swelling [Unknown]
  - Scar [Unknown]
  - Urinary tract infection [Unknown]
